FAERS Safety Report 16405902 (Version 2)
Quarter: 2019Q2

REPORT INFORMATION
  Report Type: Report from Study
  Country: CO (occurrence: CO)
  Receive Date: 20190607
  Receipt Date: 20190611
  Transmission Date: 20190711
  Serious: Yes (Other)
  Sender: FDA-Public Use
  Company Number: CO-UCBSA-2019023046

PATIENT
  Age: 43 Year
  Sex: Female
  Weight: 52 kg

DRUGS (3)
  1. LEFLUNOMIDE. [Concomitant]
     Active Substance: LEFLUNOMIDE
     Indication: RHEUMATOID ARTHRITIS
     Dosage: 20 MILLIGRAM, ONCE DAILY (QD)
     Route: 048
     Dates: start: 20170302
  2. CALCITRIOL. [Concomitant]
     Active Substance: CALCITRIOL
     Indication: SUPPLEMENTATION THERAPY
     Dosage: 0.25 MILLIGRAM, ONCE DAILY (QD)
     Route: 048
     Dates: start: 20180521
  3. CERTOLIZUMAB PEGOL [Suspect]
     Active Substance: CERTOLIZUMAB PEGOL
     Indication: RHEUMATOID ARTHRITIS
     Dosage: 400 MILLIGRAM, EV 4 WEEKS
     Route: 058
     Dates: start: 20170302, end: 20190417

REACTIONS (2)
  - Benign neoplasm of skin [Not Recovered/Not Resolved]
  - Abscess limb [Recovering/Resolving]

NARRATIVE: CASE EVENT DATE: 20180521
